FAERS Safety Report 8939091 (Version 2)
Quarter: 2012Q4

REPORT INFORMATION
  Report Type: Report from Study
  Country: CA (occurrence: CA)
  Receive Date: 20121203
  Receipt Date: 20121210
  Transmission Date: 20130627
  Serious: Yes (Hospitalization, Other)
  Sender: FDA-Public Use
  Company Number: CA-JNJFOC-20121105734

PATIENT
  Age: 35 None
  Sex: Female
  Weight: 46.72 kg

DRUGS (3)
  1. REMICADE [Suspect]
     Indication: COLITIS ULCERATIVE
     Route: 042
     Dates: start: 20121129
  2. REMICADE [Suspect]
     Indication: COLITIS ULCERATIVE
     Dosage: Received 3rd induction dose
     Route: 042
  3. REMICADE [Suspect]
     Indication: COLITIS ULCERATIVE
     Route: 042
     Dates: start: 20121019

REACTIONS (11)
  - Colitis ulcerative [Unknown]
  - Septic shock [Unknown]
  - Weight decreased [Unknown]
  - Syncope [Unknown]
  - Pulse absent [Unknown]
  - Eating disorder [Unknown]
  - Asthenia [Unknown]
  - Infusion related reaction [Recovered/Resolved]
  - Flushing [Recovered/Resolved]
  - Chest discomfort [Recovered/Resolved]
  - Nausea [Recovered/Resolved]
